FAERS Safety Report 14492531 (Version 2)
Quarter: 2018Q1

REPORT INFORMATION
  Report Type: Spontaneous
  Country: CN (occurrence: CN)
  Receive Date: 20180206
  Receipt Date: 20180330
  Transmission Date: 20180509
  Serious: Yes (Hospitalization, Other)
  Sender: FDA-Public Use
  Company Number: CN-PFIZER INC-2018039321

PATIENT

DRUGS (2)
  1. CORDARONE [Suspect]
     Active Substance: AMIODARONE HYDROCHLORIDE
     Indication: ATRIAL FIBRILLATION
     Dosage: DOSE, FORM, FREQUENCY UNKNOWN
     Route: 041
     Dates: start: 201802, end: 201802
  2. CORDARONE [Suspect]
     Active Substance: AMIODARONE HYDROCHLORIDE
     Indication: ARRHYTHMIA
     Dosage: DOSE, FORM, FREQUENCY UNKNOWN
     Route: 041
     Dates: start: 20180122, end: 20180122

REACTIONS (4)
  - Dyspnoea [Unknown]
  - Pain [Unknown]
  - Bronchiolitis [Unknown]
  - Wheezing [Unknown]

NARRATIVE: CASE EVENT DATE: 20180122
